FAERS Safety Report 19367270 (Version 1)
Quarter: 2021Q2

REPORT INFORMATION
  Report Type: Spontaneous
  Country: US (occurrence: US)
  Receive Date: 20210602
  Receipt Date: 20210602
  Transmission Date: 20210717
  Serious: Yes (Other)
  Sender: FDA-Public Use
  Company Number: US-MYLANLABS-2021M1032244

PATIENT
  Age: 59 Year
  Sex: Female

DRUGS (10)
  1. GEMCITABINE. [Suspect]
     Active Substance: GEMCITABINE
     Indication: PANCREATIC CARCINOMA METASTATIC
     Dosage: 850 MILLIGRAM/SQ. METER
     Route: 065
     Dates: start: 201907
  2. GEMCITABINE. [Suspect]
     Active Substance: GEMCITABINE
     Indication: RHABDOID TUMOUR
     Dosage: FREQUENCY WAS REDUCED TO EVERY OTHER WEEK AFTER 2 MONTHS OF THERAPY.
     Route: 065
  3. FLUOROURACIL. [Suspect]
     Active Substance: FLUOROURACIL
     Indication: RHABDOID TUMOUR
  4. IRINOTECAN [Suspect]
     Active Substance: IRINOTECAN
     Indication: PANCREATIC CARCINOMA METASTATIC
     Dosage: RECEIVED THREE DOSES AS PART OF THE MFOLFIRINOX REGIMEN
     Route: 065
     Dates: start: 201906, end: 201907
  5. IRINOTECAN [Suspect]
     Active Substance: IRINOTECAN
     Indication: RHABDOID TUMOUR
  6. OXALIPLATIN. [Suspect]
     Active Substance: OXALIPLATIN
     Indication: PANCREATIC CARCINOMA METASTATIC
     Dosage: RECEIVED THREE DOSES AS PART OF THE MFOLFIRINOX REGIMEN
     Route: 065
     Dates: start: 201906, end: 201907
  7. FLUOROURACIL. [Suspect]
     Active Substance: FLUOROURACIL
     Indication: PANCREATIC CARCINOMA METASTATIC
     Dosage: RECEIVED THREE DOSES AS PART OF THE MFOLFIRINOX REGIMEN
     Route: 065
     Dates: start: 201906, end: 201907
  8. PACLITAXEL. [Suspect]
     Active Substance: PACLITAXEL
     Indication: PANCREATIC CARCINOMA METASTATIC
     Dosage: 100 MILLIGRAM/SQ. METER
     Route: 065
     Dates: start: 201907
  9. OXALIPLATIN. [Suspect]
     Active Substance: OXALIPLATIN
     Indication: RHABDOID TUMOUR
  10. PACLITAXEL. [Suspect]
     Active Substance: PACLITAXEL
     Indication: RHABDOID TUMOUR
     Dosage: FREQUENCY WAS REDUCED TO EVERY OTHER WEEK AFTER 2 MONTHS OF THERAPY.
     Route: 065

REACTIONS (4)
  - Neuropathy peripheral [Unknown]
  - Rash [Unknown]
  - Cytopenia [Unknown]
  - Treatment failure [Unknown]

NARRATIVE: CASE EVENT DATE: 201906
